FAERS Safety Report 16474426 (Version 1)
Quarter: 2019Q2

REPORT INFORMATION
  Report Type: Spontaneous
  Country: US (occurrence: US)
  Receive Date: 20190625
  Receipt Date: 20190625
  Transmission Date: 20190711
  Serious: No
  Sender: FDA-Public Use
  Company Number: US-ASTRAZENECA-2019SE84669

PATIENT
  Sex: Female
  Weight: 68 kg

DRUGS (2)
  1. BYDUREON BCISE [Suspect]
     Active Substance: EXENATIDE
     Indication: GLYCOSYLATED HAEMOGLOBIN INCREASED
     Route: 058
     Dates: start: 201710
  2. BYDUREON [Suspect]
     Active Substance: EXENATIDE
     Indication: GLYCOSYLATED HAEMOGLOBIN INCREASED
     Route: 058
     Dates: start: 201610, end: 201710

REACTIONS (6)
  - Injection site mass [Not Recovered/Not Resolved]
  - Device malfunction [Unknown]
  - Musculoskeletal pain [Unknown]
  - Glycosylated haemoglobin increased [Unknown]
  - Rotator cuff syndrome [Not Recovered/Not Resolved]
  - Injection site extravasation [Unknown]
